FAERS Safety Report 6233930-9 (Version None)
Quarter: 2009Q2

REPORT INFORMATION
  Report Type: 
  Country: None (occurrence: None)
  Receive Date: 20090618
  Receipt Date: 20090609
  Transmission Date: 20091009
  Serious: Yes (Death)
  Sender: FDA-Public Use
  Company Number: CR-WYE-H09602709

PATIENT
  Sex: Male

DRUGS (2)
  1. PANTECTA [Suspect]
     Route: 048
     Dates: start: 20090501
  2. HUMULIN N [Concomitant]
     Indication: TYPE 2 DIABETES MELLITUS
     Dosage: 20 IU IN THE MORNING, 10 IU IN THE EVENING
     Route: 058

REACTIONS (5)
  - AGGRESSION [None]
  - CARDIO-RESPIRATORY ARREST [None]
  - DISORIENTATION [None]
  - HEPATIC ENCEPHALOPATHY [None]
  - OESOPHAGEAL VARICES HAEMORRHAGE [None]
